FAERS Safety Report 25310443 (Version 1)
Quarter: 2025Q2

REPORT INFORMATION
  Report Type: Report from Study
  Country: ZA (occurrence: ZA)
  Receive Date: 20250514
  Receipt Date: 20250514
  Transmission Date: 20250717
  Serious: Yes (Death)
  Sender: ROCHE
  Company Number: ZA-ROCHE-10000217522

PATIENT
  Sex: Female

DRUGS (1)
  1. VABYSMO [Suspect]
     Active Substance: FARICIMAB-SVOA
     Indication: Macular degeneration
     Route: 050
     Dates: start: 20241114, end: 20250124

REACTIONS (3)
  - Death [Fatal]
  - Optical coherence tomography abnormal [Unknown]
  - Visual impairment [Unknown]
